FAERS Safety Report 21746145 (Version 1)
Quarter: 2022Q4

REPORT INFORMATION
  Report Type: Report from Study
  Country: US (occurrence: US)
  Receive Date: 20221219
  Receipt Date: 20221219
  Transmission Date: 20230112
  Serious: No
  Sender: FDA-Public Use
  Company Number: US-ABBVIE-4205713

PATIENT
  Sex: Male

DRUGS (1)
  1. MAVYRET [Suspect]
     Active Substance: GLECAPREVIR\PIBRENTASVIR
     Indication: Hepatitis viral
     Dosage: TAKE 3 TABLETS BY MOUTH ONCE DAILY?THE ONSET DATE FOR ADVERSE EVENT BOWEL MOVEMENT MORE FREQUENTL...
     Route: 048
     Dates: start: 20221112

REACTIONS (1)
  - Frequent bowel movements [Unknown]
